FAERS Safety Report 9496460 (Version 1)
Quarter: 2013Q3

REPORT INFORMATION
  Report Type: Spontaneous
  Country: US (occurrence: None)
  Receive Date: 20130829
  Receipt Date: 20130829
  Transmission Date: 20140515
  Serious: Yes (Hospitalization)
  Sender: FDA-Public Use
  Company Number: FK201303688

PATIENT
  Age: 23 Year
  Sex: Female

DRUGS (1)
  1. SENSORCAINE [Suspect]
     Indication: CAESAREAN SECTION
     Route: 008

REACTIONS (3)
  - Abscess [None]
  - Hypoaesthesia [None]
  - Muscular weakness [None]
